FAERS Safety Report 22042112 (Version 3)
Quarter: 2023Q2

REPORT INFORMATION
  Report Type: Spontaneous
  Country: US (occurrence: US)
  Receive Date: 20230227
  Receipt Date: 20230418
  Transmission Date: 20230721
  Serious: Yes (Hospitalization, Other)
  Sender: FDA-Public Use
  Company Number: US-BRISTOL-MYERS SQUIBB COMPANY-2023-028725

PATIENT
  Age: 69 Year
  Sex: Female

DRUGS (5)
  1. LENALIDOMIDE [Suspect]
     Active Substance: LENALIDOMIDE
     Indication: Plasma cell myeloma
     Dosage: TAKE ONE WHOLE CAPSULE BY MOUTH ONCE DAILY FOR THE FIRST 21 DAYS OF EVERY 28 DAY CHEMOTHERAPY CYCLE
     Route: 048
     Dates: start: 20230127
  2. ZOMETA [Suspect]
     Active Substance: ZOLEDRONIC ACID
     Indication: Plasma cell myeloma
     Dosage: ONE TIME DOSE, ^ONCE EVER 3 MONTH^
     Route: 042
     Dates: start: 20230123
  3. ZOMETA [Suspect]
     Active Substance: ZOLEDRONIC ACID
     Route: 042
     Dates: start: 20230215, end: 20230225
  4. DARATUMUMAB [Concomitant]
     Active Substance: DARATUMUMAB
     Indication: Plasma cell myeloma
     Route: 058
     Dates: start: 20230215
  5. DEXAMETHASONE [Concomitant]
     Active Substance: DEXAMETHASONE
     Indication: Plasma cell myeloma
     Dosage: PILLS
     Dates: start: 20230215

REACTIONS (2)
  - Renal tubular necrosis [Recovering/Resolving]
  - Haemoglobin decreased [Recovering/Resolving]
